FAERS Safety Report 9281381 (Version 1)
Quarter: 2013Q2

REPORT INFORMATION
  Report Type: Spontaneous
  Country: US (occurrence: US)
  Receive Date: 20130509
  Receipt Date: 20130509
  Transmission Date: 20140414
  Serious: No
  Sender: FDA-Public Use
  Company Number: US-ASTRAZENECA-2013SE13594

PATIENT
  Age: 71 Year
  Sex: Female

DRUGS (3)
  1. NEXIUM [Suspect]
     Indication: OESOPHAGEAL DISORDER
     Route: 048
  2. PRILOSEC [Suspect]
     Indication: OESOPHAGEAL DISORDER
     Route: 048
  3. PROTONIX [Suspect]
     Route: 065

REACTIONS (5)
  - Drug ineffective [Unknown]
  - Feeling abnormal [Unknown]
  - Vomiting [Unknown]
  - Regurgitation [Unknown]
  - Off label use [Unknown]
